FAERS Safety Report 10422950 (Version 1)
Quarter: 2014Q3

REPORT INFORMATION
  Report Type: Spontaneous
  Country: US (occurrence: None)
  Receive Date: 20140722
  Receipt Date: 20140722
  Transmission Date: 20150326
  Serious: No
  Sender: FDA-Public Use
  Company Number: 163-10004-14054610

PATIENT
  Sex: Male

DRUGS (2)
  1. METHOTREXATE(METHOTREXATE)(UNKNOWN) [Concomitant]
  2. OTEZLA [Suspect]
     Active Substance: APREMILAST
     Indication: PSORIATIC ARTHROPATHY
     Dosage: 2 IN 1 D, 4 WEEKS AGO-
     Route: 048

REACTIONS (1)
  - Depression [None]
